FAERS Safety Report 9339089 (Version 1)
Quarter: 2013Q2

REPORT INFORMATION
  Report Type: Spontaneous
  Country: RU (occurrence: BY)
  Receive Date: 20130610
  Receipt Date: 20130610
  Transmission Date: 20140414
  Serious: Yes (Hospitalization)
  Sender: FDA-Public Use
  Company Number: RU-BAYER-2013-070922

PATIENT
  Age: 54 Year
  Sex: Female

DRUGS (4)
  1. MIRENA [Suspect]
     Dosage: 20 MCG/24HR, CONT
     Route: 015
     Dates: start: 20080802, end: 201305
  2. CEFTRIAXON [Concomitant]
  3. MEROPENEM [Concomitant]
  4. DORIPENEM [Concomitant]

REACTIONS (3)
  - Rash [Not Recovered/Not Resolved]
  - Muscle spasms [None]
  - Hyperthermia [Not Recovered/Not Resolved]
